FAERS Safety Report 13586425 (Version 3)
Quarter: 2017Q3

REPORT INFORMATION
  Report Type: Spontaneous
  Country: KR (occurrence: KR)
  Receive Date: 20170526
  Receipt Date: 20170802
  Transmission Date: 20171127
  Serious: Yes (Hospitalization, Other)
  Sender: FDA-Public Use
  Company Number: KR-009507513-1705KOR011220

PATIENT
  Age: 73 Year
  Sex: Male
  Weight: 55.8 kg

DRUGS (34)
  1. DEXAMETHASONE SODIUM PHOSPHATE. [Concomitant]
     Active Substance: DEXAMETHASONE SODIUM PHOSPHATE
     Indication: PROPHYLAXIS OF NAUSEA AND VOMITING
     Dosage: STRENGTH 5MG/ML, 12 MG, ONCE
     Route: 042
     Dates: start: 20160414, end: 20160414
  2. DEXAMETHASONE SODIUM PHOSPHATE. [Concomitant]
     Active Substance: DEXAMETHASONE SODIUM PHOSPHATE
     Dosage: STRENGTH 5MG/ML, 8 MG, BID
     Route: 042
     Dates: start: 20160416, end: 20160417
  3. DEXAMETHASONE SODIUM PHOSPHATE. [Concomitant]
     Active Substance: DEXAMETHASONE SODIUM PHOSPHATE
     Dosage: STRENGTH 5MG/ML, 8 MG, BID
     Route: 042
     Dates: start: 20160508, end: 20160509
  4. MANNITOL. [Concomitant]
     Active Substance: MANNITOL
     Indication: DRUG TOXICITY PROPHYLAXIS
     Dosage: (STRENGTH 20%100ML) 100 ML, ONCE
     Route: 042
     Dates: start: 20160414, end: 20160414
  5. DUPHALAC [Concomitant]
     Active Substance: LACTULOSE
     Indication: CONSTIPATION PROPHYLAXIS
     Dosage: 20 ML, TID
     Route: 048
     Dates: start: 20160118
  6. CISPLATIN. [Concomitant]
     Active Substance: CISPLATIN
     Indication: CHEMOTHERAPY
     Dosage: (STRENGTH 50MG/100ML) 100 MG, ONCE, CYCLE 2
     Route: 042
     Dates: start: 20160414, end: 20160414
  7. CISPLATIN. [Concomitant]
     Active Substance: CISPLATIN
     Dosage: (STRENGTH 50MG/100ML) 100 MG, ONCE, CYCLE 3
     Route: 042
     Dates: start: 20160506, end: 20160506
  8. ALIMTA [Concomitant]
     Active Substance: PEMETREXED DISODIUM
     Dosage: 810 MG, ONCE, CYCLE 3
     Route: 042
     Dates: start: 20160506, end: 20160506
  9. DEXAMETHASONE SODIUM PHOSPHATE. [Concomitant]
     Active Substance: DEXAMETHASONE SODIUM PHOSPHATE
     Indication: PREMEDICATION
     Dosage: STRENGTH 5MG/ML, 8 MG, ONCE
     Route: 042
     Dates: start: 20160415, end: 20160415
  10. DEXAMETHASONE SODIUM PHOSPHATE. [Concomitant]
     Active Substance: DEXAMETHASONE SODIUM PHOSPHATE
     Dosage: STRENGTH 5MG/ML, 12 MG, ONCE
     Route: 042
     Dates: start: 20160506, end: 20160506
  11. SCD MAGNESIUM OXIDE [Concomitant]
     Indication: CONSTIPATION PROPHYLAXIS
     Dosage: 250 MG, TID
     Route: 048
     Dates: start: 20160111
  12. LASIX [Concomitant]
     Active Substance: FUROSEMIDE
     Indication: PREMEDICATION
     Dosage: (STRENGTH 20MG/2ML) 20 MG, QD
     Route: 042
     Dates: start: 20160414, end: 20160417
  13. FOLIC ACID. [Concomitant]
     Active Substance: FOLIC ACID
     Indication: PREMEDICATION
     Dosage: 1 MG, QD
     Route: 048
     Dates: start: 20160111
  14. DULCOLAX S [Concomitant]
     Indication: CONSTIPATION PROPHYLAXIS
     Dosage: 1 DF, QD
     Dates: start: 20160510
  15. EMEND (FOSAPREPITANT DIMEGLUMINE) [Suspect]
     Active Substance: FOSAPREPITANT DIMEGLUMINE
     Indication: PROPHYLAXIS OF NAUSEA AND VOMITING
     Dosage: 150 MG, ONCE
     Route: 042
     Dates: start: 20160414, end: 20160414
  16. ALOXI [Concomitant]
     Active Substance: PALONOSETRON HYDROCHLORIDE
     Indication: PROPHYLAXIS OF NAUSEA AND VOMITING
     Dosage: 0.25 MG, ONCE
     Route: 042
     Dates: start: 20160414, end: 20160414
  17. MANNITOL. [Concomitant]
     Active Substance: MANNITOL
     Indication: PREMEDICATION
     Dosage: (STRENGTH 20%100ML) 100 ML, ONCE
     Route: 042
     Dates: start: 20160506, end: 20160506
  18. LYRICA [Concomitant]
     Active Substance: PREGABALIN
     Indication: CANCER PAIN
     Dosage: 75 MG, BID
     Route: 048
     Dates: start: 20160418
  19. CISPLATIN. [Concomitant]
     Active Substance: CISPLATIN
     Indication: CHEMOTHERAPY
     Dosage: (STRENGTH: 10MG/20ML)20 MG, ONCE, CYCLE 2
     Route: 042
     Dates: start: 20160414, end: 20160414
  20. CISPLATIN. [Concomitant]
     Active Substance: CISPLATIN
     Dosage: (STRENGTH: 10MG/20ML) 20 MG, ONCE, CYCLE 3
     Route: 042
     Dates: start: 20160506, end: 20160506
  21. DEXAMETHASONE SODIUM PHOSPHATE. [Concomitant]
     Active Substance: DEXAMETHASONE SODIUM PHOSPHATE
     Dosage: STRENGTH 5MG/ML, 8 MG, ONCE
     Route: 042
     Dates: start: 20160507, end: 20160507
  22. ALOXI [Concomitant]
     Active Substance: PALONOSETRON HYDROCHLORIDE
     Dosage: 0.25 MG, ONCE
     Route: 042
     Dates: start: 20160506, end: 20160506
  23. ANYCOUGH [Concomitant]
     Active Substance: THEOBROMINE
     Indication: COUGH
     Dosage: 300 MG, BID
     Route: 048
     Dates: start: 20160204
  24. MEGACE [Concomitant]
     Active Substance: MEGESTROL ACETATE
     Indication: PROPHYLAXIS
     Dosage: 625 MG, QD
     Route: 048
     Dates: start: 20160111, end: 20160511
  25. DUROGESIC [Concomitant]
     Active Substance: FENTANYL
     Indication: CANCER PAIN
     Dosage: (STRENGTH: 2.5MCG/H 10.5 CM2) 25 MCG/H, QD
     Route: 062
     Dates: start: 20160115
  26. ACTINAMIDE [Concomitant]
     Indication: PREMEDICATION
     Dosage: STRENGTH 1000MCG/2ML,1 MG, ONCE
     Route: 030
     Dates: start: 20160507, end: 20160507
  27. PANTOLINE TABLETS [Concomitant]
     Indication: GASTRITIS PROPHYLAXIS
     Dosage: 20 MG, QD
     Route: 048
     Dates: start: 20160111
  28. LASIX [Concomitant]
     Active Substance: FUROSEMIDE
     Indication: DRUG TOXICITY PROPHYLAXIS
     Dosage: (STRENGTH 20MG/2ML) 20 MG, QD
     Route: 042
     Dates: start: 20160506, end: 20160509
  29. BISOLVON [Concomitant]
     Active Substance: BROMHEXINE HYDROCHLORIDE
     Indication: PROPHYLAXIS
     Dosage: 8 MG, TID
     Route: 048
     Dates: start: 20160511
  30. EMEND (FOSAPREPITANT DIMEGLUMINE) [Suspect]
     Active Substance: FOSAPREPITANT DIMEGLUMINE
     Dosage: 150 MG, ONCE
     Route: 042
     Dates: start: 20160506, end: 20160506
  31. ALIMTA [Concomitant]
     Active Substance: PEMETREXED DISODIUM
     Indication: CHEMOTHERAPY
     Dosage: 800 MG, ONCE, CYCLE 2
     Route: 042
     Dates: start: 20160414, end: 20160414
  32. DEXAMETHASONE SODIUM PHOSPHATE. [Concomitant]
     Active Substance: DEXAMETHASONE SODIUM PHOSPHATE
     Dosage: STRENGTH 5MG/ML, 4 MG, ONCE
     Route: 042
     Dates: start: 20160413, end: 20160413
  33. LASIX [Concomitant]
     Active Substance: FUROSEMIDE
     Indication: PROPHYLAXIS
     Dosage: (STRENGTH 20MG/2ML) 40 MG, QD
     Route: 042
     Dates: start: 20160502, end: 20160507
  34. ULTRACET [Concomitant]
     Active Substance: ACETAMINOPHEN\TRAMADOL HYDROCHLORIDE
     Indication: ANALGESIC THERAPY
     Dosage: 1 DF, BID
     Route: 048
     Dates: start: 20160419

REACTIONS (2)
  - Delirium [Recovered/Resolved]
  - Pneumonia [Recovered/Resolved]

NARRATIVE: CASE EVENT DATE: 20160516
